FAERS Safety Report 18439934 (Version 2)
Quarter: 2020Q4

REPORT INFORMATION
  Report Type: Report from Study
  Country: GB (occurrence: GB)
  Receive Date: 20201029
  Receipt Date: 20201210
  Transmission Date: 20210114
  Serious: Yes (Other)
  Sender: FDA-Public Use
  Company Number: NVSC2020GB286992

PATIENT
  Sex: Male

DRUGS (1)
  1. HYRIMOZ [Suspect]
     Active Substance: ADALIMUMAB-ADAZ
     Indication: ANKYLOSING SPONDYLITIS
     Dosage: 40 MG, Q2W
     Route: 058
     Dates: start: 2019

REACTIONS (4)
  - Product dose omission issue [Unknown]
  - Memory impairment [Unknown]
  - Cerebral atrophy [Unknown]
  - Confusional state [Unknown]
